FAERS Safety Report 10759359 (Version 1)
Quarter: 2015Q1

REPORT INFORMATION
  Report Type: Spontaneous
  Country: CN (occurrence: CN)
  Receive Date: 20150203
  Receipt Date: 20150203
  Transmission Date: 20150721
  Serious: Yes (Hospitalization)
  Sender: FDA-Public Use
  Company Number: CN-ELI_LILLY_AND_COMPANY-CN201501003213

PATIENT
  Sex: Male

DRUGS (3)
  1. NOVONORM [Concomitant]
     Active Substance: REPAGLINIDE
     Indication: BLOOD GLUCOSE INCREASED
     Dosage: 1 DF, QD
     Route: 048
     Dates: start: 2012
  2. HUMALOG [Suspect]
     Active Substance: INSULIN LISPRO
     Dosage: 20 DF, EACH EVENING
     Route: 058
     Dates: start: 2012
  3. HUMALOG [Suspect]
     Active Substance: INSULIN LISPRO
     Indication: DIABETES MELLITUS
     Dosage: 22 DF, EACH MORNING
     Route: 058
     Dates: start: 2012

REACTIONS (3)
  - Blood glucose abnormal [Not Recovered/Not Resolved]
  - Blood glucose increased [Unknown]
  - Blood glucose increased [Not Recovered/Not Resolved]
